FAERS Safety Report 21685139 (Version 4)
Quarter: 2023Q2

REPORT INFORMATION
  Report Type: Report from Study
  Country: US (occurrence: US)
  Receive Date: 20221206
  Receipt Date: 20230510
  Transmission Date: 20230722
  Serious: Yes (Hospitalization, Other)
  Sender: FDA-Public Use
  Company Number: US-ABBVIE-4224117

PATIENT
  Age: 76 Year
  Sex: Male

DRUGS (2)
  1. IMBRUVICA [Suspect]
     Active Substance: IBRUTINIB
     Indication: Mantle cell lymphoma
     Route: 058
  2. IMBRUVICA [Suspect]
     Active Substance: IBRUTINIB
     Indication: Mantle cell lymphoma
     Route: 048

REACTIONS (10)
  - Loss of consciousness [Unknown]
  - Malaise [Unknown]
  - Chest pain [Unknown]
  - Nasopharyngitis [Unknown]
  - Respiratory tract congestion [Unknown]
  - Hospitalisation [Unknown]
  - Skin discolouration [Unknown]
  - Hypotension [Unknown]
  - Cardiac valve disease [Unknown]
  - Asthenia [Unknown]

NARRATIVE: CASE EVENT DATE: 20220901
